FAERS Safety Report 9283377 (Version 3)
Quarter: 2013Q3

REPORT INFORMATION
  Report Type: Spontaneous
  Country: JP (occurrence: None)
  Receive Date: 20130506
  Receipt Date: 20130906
  Transmission Date: 20140515
  Serious: Yes (Other)
  Sender: FDA-Public Use
  Company Number: 2013S1001031

PATIENT
  Age: 63 Year
  Sex: Male
  Weight: 87 kg

DRUGS (5)
  1. LIVALO [Suspect]
     Indication: HYPERCHOLESTEROLAEMIA
     Route: 048
  2. INVESTIGATIONAL DRUG [Suspect]
     Dates: start: 20110425, end: 20120423
  3. OLMETEC [Suspect]
     Indication: HYPERTENSION
     Route: 048
  4. GLIMICRON [Suspect]
     Indication: DIABETES MELLITUS
     Route: 048
  5. METGLUCO [Suspect]
     Indication: DIABETES MELLITUS
     Route: 048

REACTIONS (6)
  - Gastric cancer stage III [None]
  - Adenocarcinoma [None]
  - Pulmonary embolism [None]
  - Deep vein thrombosis [None]
  - Pseudomembranous colitis [None]
  - White blood cell count decreased [None]
